FAERS Safety Report 16025479 (Version 3)
Quarter: 2019Q3

REPORT INFORMATION
  Report Type: Report from Study
  Country: JP (occurrence: JP)
  Receive Date: 20190301
  Receipt Date: 20190702
  Transmission Date: 20191004
  Serious: Yes (Death, Hospitalization, Other)
  Sender: FDA-Public Use
  Company Number: JP-AMGEN-JPNSP2016135875

PATIENT
  Age: 72 Year
  Sex: Female
  Weight: 51 kg

DRUGS (5)
  1. REVLIMID [Suspect]
     Active Substance: LENALIDOMIDE
     Indication: PLASMA CELL MYELOMA
     Dosage: 10 MILLIGRAM, EVERYDAY
     Route: 048
     Dates: start: 20160920, end: 20161006
  2. REVLIMID [Suspect]
     Active Substance: LENALIDOMIDE
     Dosage: 10 MILLIGRAM, EVERYDAY
     Route: 048
     Dates: start: 20161114, end: 20161128
  3. CARFILZOMIB [Suspect]
     Active Substance: CARFILZOMIB
     Indication: PLASMA CELL MYELOMA
     Dosage: 20 MILLIGRAM/SQ. METER/DAY(2016/9/20,9/21,11/14,11/15) 27MG/M2/DAY(2016/9/27,9/28,10/12,10/13,11/21,
     Route: 041
     Dates: start: 20160920
  4. REVLIMID [Suspect]
     Active Substance: LENALIDOMIDE
     Dosage: 10 MILLIGRAM, EVERYDAY
     Route: 048
     Dates: start: 20161012, end: 20161016
  5. DEXAMETHASONE. [Suspect]
     Active Substance: DEXAMETHASONE
     Indication: PLASMA CELL MYELOMA
     Dosage: 40 MILLIGRAM/DAY(2016/9/20,9/27,10/12,11/14,11/21,11/28) 4MG/DAY(2016/9/21,9/28,11/15,11/22)
     Route: 048
     Dates: start: 20160920

REACTIONS (8)
  - Hypercalcaemia [Recovered/Resolved]
  - Haemoglobin decreased [Not Recovered/Not Resolved]
  - Renal disorder [Recovered/Resolved]
  - Peripheral venous disease [Unknown]
  - Renal vein stenosis [Unknown]
  - Renal vein compression [Recovering/Resolving]
  - Neuropathy peripheral [Recovering/Resolving]
  - Platelet count decreased [Recovered/Resolved]

NARRATIVE: CASE EVENT DATE: 20160920
